FAERS Safety Report 4778386-8 (Version None)
Quarter: 2005Q3

REPORT INFORMATION
  Report Type: 
  Country: None (occurrence: None)
  Receive Date: 20050926
  Receipt Date: 20050818
  Transmission Date: 20060218
  Serious: Yes (Disabling, Other)
  Sender: FDA-Public Use
  Company Number: GB-GLAXOSMITHKLINE-B0391114A

PATIENT
  Age: 79 Year
  Sex: Male
  Weight: 103 kg

DRUGS (10)
  1. AVANDAMET [Suspect]
     Dosage: 1TAB TWICE PER DAY
     Route: 048
     Dates: start: 20050615, end: 20050725
  2. FINASTERIDE [Concomitant]
     Route: 048
  3. OXYBUTYNIN [Concomitant]
     Route: 048
  4. LISINOPRIL [Concomitant]
     Route: 048
  5. DOXAZOSIN [Concomitant]
     Route: 048
  6. ASPIRIN [Concomitant]
     Route: 048
  7. SIMVASTATIN [Concomitant]
     Dosage: 20MG PER DAY
     Route: 048
  8. GLICLAZIDE [Concomitant]
     Route: 048
  9. TOPICAL EYE OINTMENT [Concomitant]
     Indication: GLAUCOMA
  10. UNSPECIFIED MEDICATION [Concomitant]
     Route: 055

REACTIONS (5)
  - ATRIAL FIBRILLATION [None]
  - CARDIAC FAILURE [None]
  - DYSPNOEA [None]
  - OEDEMA PERIPHERAL [None]
  - WEIGHT INCREASED [None]
